FAERS Safety Report 7075031-6 (Version None)
Quarter: 2010Q4

REPORT INFORMATION
  Report Type: 
  Country: None (occurrence: None)
  Receive Date: 20101029
  Receipt Date: 20100115
  Transmission Date: 20110411
  Serious: No
  Sender: FDA-Public Use
  Company Number: US-WYE-H12651909

PATIENT
  Age: 73 Year
  Sex: Male
  Weight: 86.26 kg

DRUGS (6)
  1. ALAVERT [Suspect]
     Indication: EYE PRURITUS
     Route: 048
     Dates: start: 20091206
  2. CENTRUM SILVER [Concomitant]
  3. FLUOXETINE HYDROCHLORIDE [Concomitant]
  4. FIBERCON [Concomitant]
  5. PHENOBARBITAL [Concomitant]
  6. MYSOLINE [Concomitant]

REACTIONS (1)
  - DRUG EFFECT DECREASED [None]
